FAERS Safety Report 6749786-1 (Version None)
Quarter: 2010Q2

REPORT INFORMATION
  Report Type: 
  Country: None (occurrence: None)
  Receive Date: 20100601
  Receipt Date: 20100525
  Transmission Date: 20101027
  Serious: Yes (Hospitalization, Other)
  Sender: FDA-Public Use
  Company Number: GB-MERCK-1005GBR00091

PATIENT
  Sex: Female

DRUGS (2)
  1. ZOCOR [Suspect]
     Route: 048
  2. MICONAZOLE NITRATE [Suspect]
     Route: 048

REACTIONS (2)
  - DRUG INTERACTION [None]
  - OEDEMA MOUTH [None]
